FAERS Safety Report 7457498-4 (Version None)
Quarter: 2011Q2

REPORT INFORMATION
  Report Type: 
  Country: None (occurrence: None)
  Receive Date: 20110504
  Receipt Date: 20110502
  Transmission Date: 20111010
  Serious: Yes (Death, Hospitalization)
  Sender: FDA-Public Use
  Company Number: DE-SANOFI-AVENTIS-2011SA026700

PATIENT
  Age: 60 Year

DRUGS (12)
  1. CISPLATIN [Suspect]
     Route: 041
     Dates: start: 20110415, end: 20110415
  2. DOCETAXEL [Suspect]
     Route: 041
     Dates: start: 20110415, end: 20110415
  3. AMPHOTERICIN B [Concomitant]
     Route: 065
  4. CETUXIMAB [Suspect]
     Route: 041
     Dates: start: 20110415, end: 20110415
  5. METOCLOPRAMIDE [Concomitant]
     Route: 065
  6. ACC LONG [Concomitant]
     Dosage: 1-0-0
     Route: 048
  7. ZOFRAN [Concomitant]
     Route: 048
  8. DEXAMETHASONE [Concomitant]
     Route: 065
  9. CISPLATIN [Suspect]
     Indication: LIP AND/OR ORAL CAVITY CANCER
     Route: 041
     Dates: start: 20110331, end: 20110331
  10. CETUXIMAB [Suspect]
     Indication: LIP AND/OR ORAL CAVITY CANCER
     Route: 041
     Dates: start: 20110331, end: 20110331
  11. DURAGESIC-100 [Concomitant]
     Dosage: 25 MCG/H
     Route: 062
  12. DOCETAXEL [Suspect]
     Indication: LIP AND/OR ORAL CAVITY CANCER
     Route: 041
     Dates: start: 20110331, end: 20110331

REACTIONS (3)
  - RESPIRATORY FAILURE [None]
  - PNEUMONIA ASPIRATION [None]
  - TUMOUR HAEMORRHAGE [None]
